FAERS Safety Report 13947704 (Version 6)
Quarter: 2023Q1

REPORT INFORMATION
  Report Type: Report from Study
  Country: IL (occurrence: None)
  Receive Date: 20170908
  Receipt Date: 20230327
  Transmission Date: 20230418
  Serious: Yes (Life-Threatening, Hospitalization)
  Sender: FDA-Public Use
  Company Number: IL-ROCHE-1987480

PATIENT
  Age: 73 Year
  Sex: Female
  Weight: 68.6 kg

DRUGS (40)
  1. RITUXIMAB [Suspect]
     Active Substance: RITUXIMAB
     Indication: Diffuse large B-cell lymphoma
     Dosage: MOST RECENT DOSE PRIOR TO SYNCOPE WAS ON 22/MAY/2017.?MOST RECENT DOSE PRIOR TO FIRST OCCURRENCE OF
     Route: 042
     Dates: start: 20170430
  2. RITUXIMAB [Suspect]
     Active Substance: RITUXIMAB
     Route: 042
     Dates: start: 20170522, end: 20170522
  3. RITUXIMAB [Suspect]
     Active Substance: RITUXIMAB
     Route: 042
     Dates: start: 20170612, end: 20170612
  4. RITUXIMAB [Suspect]
     Active Substance: RITUXIMAB
     Route: 042
     Dates: start: 20170713, end: 20170713
  5. RITUXIMAB [Suspect]
     Active Substance: RITUXIMAB
     Route: 042
     Dates: start: 20170806, end: 20170806
  6. RITUXIMAB [Suspect]
     Active Substance: RITUXIMAB
     Route: 042
     Dates: start: 20170828, end: 20170828
  7. LENALIDOMIDE [Suspect]
     Active Substance: LENALIDOMIDE
     Indication: Diffuse large B-cell lymphoma
     Dosage: MOST RECENT DOSE PRIOR TO SYNCOPE WAS ON 22/MAY/2017.?MOST RECENT DOSE PRIOR TO FIRST OCCURRENCE OF
     Route: 048
     Dates: start: 20170430
  8. LENALIDOMIDE [Suspect]
     Active Substance: LENALIDOMIDE
     Route: 048
     Dates: start: 20170522, end: 20170529
  9. LENALIDOMIDE [Suspect]
     Active Substance: LENALIDOMIDE
     Route: 048
     Dates: start: 20170612, end: 20170625
  10. LENALIDOMIDE [Suspect]
     Active Substance: LENALIDOMIDE
     Route: 048
     Dates: start: 20170713, end: 20170715
  11. LENALIDOMIDE [Suspect]
     Active Substance: LENALIDOMIDE
     Route: 048
     Dates: start: 20170828, end: 20170828
  12. DOXORUBICIN [Suspect]
     Active Substance: DOXORUBICIN
     Indication: Diffuse large B-cell lymphoma
     Dosage: MOST RECENT DOSE PRIOR TO SYNCOPE WAS ON 22/MAY/2017.?MOST RECENT DOSE PRIOR TO FIRST OCCURRENCE OF
     Route: 042
     Dates: start: 20170430
  13. DOXORUBICIN [Suspect]
     Active Substance: DOXORUBICIN
     Route: 042
     Dates: start: 20170522, end: 20170522
  14. DOXORUBICIN [Suspect]
     Active Substance: DOXORUBICIN
     Route: 042
     Dates: start: 20170612, end: 20170612
  15. DOXORUBICIN [Suspect]
     Active Substance: DOXORUBICIN
     Route: 042
     Dates: start: 20170713, end: 20170713
  16. DOXORUBICIN [Suspect]
     Active Substance: DOXORUBICIN
     Dosage: LAST DOSE PRIOR SAE (NEUTROPENIA) ON 28/AUG/2017
     Route: 042
     Dates: start: 20170806, end: 20170806
  17. CYCLOPHOSPHAMIDE [Suspect]
     Active Substance: CYCLOPHOSPHAMIDE
     Indication: Diffuse large B-cell lymphoma
     Dosage: MOST RECENT DOSE PRIOR TO SYNCOPE WAS ON 22/MAY/2017.?MOST RECENT DOSE PRIOR TO FIRST OCCURRENCE OF
     Route: 042
     Dates: start: 20170430
  18. CYCLOPHOSPHAMIDE [Suspect]
     Active Substance: CYCLOPHOSPHAMIDE
     Route: 042
     Dates: start: 20170522, end: 20170522
  19. CYCLOPHOSPHAMIDE [Suspect]
     Active Substance: CYCLOPHOSPHAMIDE
     Dosage: LAST DOSE PRIOR TO SAE (NEUTROPENIA) ON 28/AUG/2017
     Route: 042
     Dates: start: 20170612, end: 20170612
  20. VINCRISTINE [Suspect]
     Active Substance: VINCRISTINE
     Indication: Diffuse large B-cell lymphoma
     Dosage: MOST RECENT DOSE PRIOR TO SYNCOPE WAS ON 22/MAY/2017.?MOST RECENT DOSE PRIOR TO FIRST OCCURRENCE OF
     Route: 042
     Dates: start: 20170430
  21. VINCRISTINE [Suspect]
     Active Substance: VINCRISTINE
     Route: 042
     Dates: start: 20170522, end: 20170522
  22. VINCRISTINE [Suspect]
     Active Substance: VINCRISTINE
     Route: 042
     Dates: start: 20170612, end: 20170612
  23. VINCRISTINE [Suspect]
     Active Substance: VINCRISTINE
     Route: 042
     Dates: start: 20170713, end: 20170713
  24. VINCRISTINE [Suspect]
     Active Substance: VINCRISTINE
     Dosage: LAST DOSE PRIOR TO SAE (NEUTROPENIA) ON 28/AUG/2017
     Route: 042
     Dates: start: 20170806
  25. PREDNISONE [Suspect]
     Active Substance: PREDNISONE
     Indication: Diffuse large B-cell lymphoma
     Dosage: MOST RECENT DOSE PRIOR TO SYNCOPE WAS ON 22/MAY/2017.?MOST RECENT DOSE PRIOR TO FIRST OCCURRENCE OF
     Route: 048
     Dates: start: 20170430
  26. PREDNISONE [Suspect]
     Active Substance: PREDNISONE
     Route: 048
     Dates: start: 20170522, end: 20170522
  27. PREDNISONE [Suspect]
     Active Substance: PREDNISONE
     Route: 048
     Dates: start: 20170612, end: 20170612
  28. PREDNISONE [Suspect]
     Active Substance: PREDNISONE
     Route: 048
     Dates: start: 20170716
  29. PREDNISONE [Suspect]
     Active Substance: PREDNISONE
     Dosage: RECEIVED AGAIN ON 10/AUG/2017?LAST DOSE PRIOR TO SAE (NEUTROPENIA) ON 28/AUG/2017
     Route: 048
     Dates: start: 20170806
  30. KCL [Concomitant]
     Active Substance: POTASSIUM CHLORIDE
     Dosage: 20 MCG/100 ML SALINE
     Route: 042
  31. FLAGYL [Concomitant]
     Active Substance: METRONIDAZOLE\METRONIDAZOLE HYDROCHLORIDE
     Route: 065
  32. LOSEC [Concomitant]
     Active Substance: OMEPRAZOLE
     Route: 065
  33. LOSARTAN POTASSIUM AND HYDROCHLOROTHIAZIDE [Concomitant]
     Active Substance: HYDROCHLOROTHIAZIDE\LOSARTAN POTASSIUM
     Route: 065
  34. NORVASC [Concomitant]
     Active Substance: AMLODIPINE BESYLATE
     Route: 065
  35. LAMIVUDINE [Concomitant]
     Active Substance: LAMIVUDINE
     Route: 065
  36. FLUCONAZOLE [Concomitant]
     Active Substance: FLUCONAZOLE
     Route: 042
     Dates: start: 20170813
  37. OMEPRAZOLE [Concomitant]
     Active Substance: OMEPRAZOLE
  38. ENALAPRIL [Concomitant]
     Active Substance: ENALAPRIL
  39. BROTIZOLAM [Concomitant]
     Active Substance: BROTIZOLAM
  40. ENOXAPARIN SODIUM [Concomitant]
     Active Substance: ENOXAPARIN SODIUM

REACTIONS (11)
  - Pulmonary embolism [Recovered/Resolved]
  - Syncope [Recovered/Resolved]
  - Febrile neutropenia [Recovered/Resolved]
  - Diarrhoea [Unknown]
  - Vomiting [Unknown]
  - Hypoxia [Recovered/Resolved]
  - Presyncope [Recovered/Resolved]
  - Addison^s disease [Unknown]
  - Orthostatic hypotension [Recovered/Resolved]
  - Presyncope [Recovered/Resolved]
  - Neutropenia [Recovered/Resolved]

NARRATIVE: CASE EVENT DATE: 20170529
